FAERS Safety Report 13711779 (Version 1)
Quarter: 2017Q3

REPORT INFORMATION
  Report Type: Spontaneous
  Country: KR (occurrence: KR)
  Receive Date: 20170703
  Receipt Date: 20170703
  Transmission Date: 20171127
  Serious: Yes (Life-Threatening, Hospitalization)
  Sender: FDA-Public Use
  Company Number: KR-BAYER-2017-124616

PATIENT
  Age: 22 Year
  Sex: Female

DRUGS (1)
  1. YAZ [Suspect]
     Active Substance: DROSPIRENONE\ETHINYL ESTRADIOL
     Dosage: UNK
     Route: 048
     Dates: start: 20170610

REACTIONS (5)
  - Loss of consciousness [Recovering/Resolving]
  - Feeling abnormal [None]
  - Circulatory collapse [None]
  - Brain injury [None]
  - Pulmonary embolism [None]

NARRATIVE: CASE EVENT DATE: 20170615
